FAERS Safety Report 5198867-5 (Version None)
Quarter: 2006Q4

REPORT INFORMATION
  Report Type: 
  Country: None (occurrence: None)
  Receive Date: 20060926
  Receipt Date: 20060113
  Transmission Date: 20070319
  Serious: Yes (Other)
  Sender: FDA-Public Use
  Company Number: BDI-007866

PATIENT
  Sex: Female

DRUGS (1)
  1. RENO-60 [Suspect]
     Indication: DIAGNOSTIC PROCEDURE
     Dosage: SY
     Dates: start: 20060112, end: 20060112

REACTIONS (1)
  - HYPERSENSITIVITY [None]
